FAERS Safety Report 25807279 (Version 1)
Quarter: 2025Q3

REPORT INFORMATION
  Report Type: Report from Study
  Country: CN (occurrence: CN)
  Receive Date: 20250916
  Receipt Date: 20250916
  Transmission Date: 20251020
  Serious: Yes (Other)
  Sender: ROCHE
  Company Number: CN-ROCHE-10000149424

PATIENT
  Age: 51 Year
  Sex: Female
  Weight: 47 kg

DRUGS (46)
  1. POLATUZUMAB VEDOTIN [Suspect]
     Active Substance: POLATUZUMAB VEDOTIN
     Indication: Diffuse large B-cell lymphoma
     Route: 042
     Dates: start: 20240426, end: 20240426
  2. POLATUZUMAB VEDOTIN [Suspect]
     Active Substance: POLATUZUMAB VEDOTIN
     Route: 042
     Dates: start: 20240524, end: 20240524
  3. ZUBERITAMAB [Suspect]
     Active Substance: ZUBERITAMAB
     Indication: Diffuse large B-cell lymphoma
     Route: 042
     Dates: start: 20240425, end: 20240425
  4. ZUBERITAMAB [Suspect]
     Active Substance: ZUBERITAMAB
     Route: 042
     Dates: start: 20240530, end: 20240530
  5. DEXAMETHASONE [Suspect]
     Active Substance: DEXAMETHASONE
     Indication: Diffuse large B-cell lymphoma
     Route: 042
     Dates: start: 20240426, end: 20240430
  6. DEXAMETHASONE [Suspect]
     Active Substance: DEXAMETHASONE
     Route: 042
     Dates: start: 20240524, end: 20240527
  7. MITOXANTRONE [Suspect]
     Active Substance: MITOXANTRONE HYDROCHLORIDE
     Indication: Diffuse large B-cell lymphoma
     Route: 042
     Dates: start: 20240426, end: 20240426
  8. MITOXANTRONE [Suspect]
     Active Substance: MITOXANTRONE HYDROCHLORIDE
     Route: 042
     Dates: start: 20240523, end: 20240523
  9. CYCLOPHOSPHAMIDE [Suspect]
     Active Substance: CYCLOPHOSPHAMIDE
     Indication: Diffuse large B-cell lymphoma
     Route: 042
     Dates: start: 20240523, end: 20240523
  10. CYCLOPHOSPHAMIDE [Suspect]
     Active Substance: CYCLOPHOSPHAMIDE
     Route: 042
     Dates: start: 20240426, end: 20240426
  11. Pantoprazole sodium injection [Concomitant]
     Route: 042
     Dates: start: 20240423, end: 20240430
  12. Pantoprazole sodium injection [Concomitant]
     Route: 042
     Dates: start: 20240519, end: 20240520
  13. Pantoprazole sodium injection [Concomitant]
     Route: 042
     Dates: start: 20240530, end: 20240530
  14. Pantoprazole sodium injection [Concomitant]
     Route: 042
     Dates: start: 20240619, end: 20240619
  15. tathion injection [Concomitant]
     Route: 042
     Dates: start: 20240423, end: 20240430
  16. tathion injection [Concomitant]
     Route: 042
     Dates: start: 20240519, end: 20240520
  17. tathion injection [Concomitant]
     Route: 042
     Dates: start: 20240530, end: 20240530
  18. POTASSIUM CHLORIDE [Concomitant]
     Active Substance: POTASSIUM CHLORIDE
     Route: 042
     Dates: start: 20240423, end: 20240430
  19. VITAMIN B6 [Concomitant]
     Active Substance: PYRIDOXINE HYDROCHLORIDE
     Route: 042
     Dates: start: 20240423, end: 20240430
  20. VITAMIN B6 [Concomitant]
     Active Substance: PYRIDOXINE HYDROCHLORIDE
     Route: 042
     Dates: start: 20240519, end: 20240520
  21. VITAMIN B6 [Concomitant]
     Active Substance: PYRIDOXINE HYDROCHLORIDE
     Route: 042
     Dates: start: 20240530, end: 20240530
  22. VITAMIN B6 [Concomitant]
     Active Substance: PYRIDOXINE HYDROCHLORIDE
     Route: 042
     Dates: start: 20240619, end: 20240620
  23. SODIUM BICARBONATE [Concomitant]
     Active Substance: SODIUM BICARBONATE
     Route: 042
     Dates: start: 20240423, end: 20240430
  24. SODIUM BICARBONATE [Concomitant]
     Active Substance: SODIUM BICARBONATE
     Route: 042
     Dates: start: 20240519, end: 20240520
  25. SODIUM BICARBONATE [Concomitant]
     Active Substance: SODIUM BICARBONATE
     Route: 042
     Dates: start: 20240530, end: 20240530
  26. SODIUM BICARBONATE [Concomitant]
     Active Substance: SODIUM BICARBONATE
     Route: 042
     Dates: start: 20240619, end: 20240620
  27. DEXTROSE [Concomitant]
     Active Substance: DEXTROSE MONOHYDRATE
     Route: 042
     Dates: start: 20240423, end: 20240429
  28. CALCIUM GLUCONATE [Concomitant]
     Active Substance: CALCIUM GLUCONATE
     Route: 042
     Dates: start: 20240425, end: 20240425
  29. CALCIUM GLUCONATE [Concomitant]
     Active Substance: CALCIUM GLUCONATE
     Route: 042
     Dates: start: 20240620, end: 20240620
  30. Promethazine injection [Concomitant]
     Route: 042
     Dates: start: 20240425, end: 20240427
  31. Promethazine injection [Concomitant]
     Route: 042
     Dates: start: 20240530, end: 20240530
  32. Promethazine injection [Concomitant]
     Route: 042
     Dates: start: 20240620, end: 20240620
  33. Acetaminophen sustained-release tablets [Concomitant]
     Route: 048
     Dates: start: 20240425, end: 20240426
  34. Acetaminophen sustained-release tablets [Concomitant]
     Route: 048
     Dates: start: 20240530, end: 20240530
  35. DEXRAZOXANE [Concomitant]
     Active Substance: DEXRAZOXANE
     Route: 042
     Dates: start: 20240427, end: 20240427
  36. Mesa sodium injection [Concomitant]
     Route: 042
     Dates: start: 20240427, end: 20240427
  37. ondansetron inj [Concomitant]
     Route: 042
     Dates: start: 20240427, end: 20240427
  38. FEBUXOSTAT [Concomitant]
     Active Substance: FEBUXOSTAT
     Route: 048
     Dates: start: 20240426
  39. Chlorhexidine gluconate gargle [Concomitant]
     Route: 048
     Dates: start: 20240428, end: 20240504
  40. omeprazole enteric-coated capsules [Concomitant]
     Route: 048
     Dates: start: 20240429, end: 202405
  41. sodium bicarbonate tablet [Concomitant]
     Route: 048
     Dates: start: 20240429, end: 202405
  42. ENTECAVIR [Concomitant]
     Active Substance: ENTECAVIR
     Route: 048
  43. Calcium carbonate D3 tablets [Concomitant]
     Route: 048
     Dates: start: 202405, end: 202406
  44. Live Clostridium butyricum powder [Concomitant]
     Route: 048
     Dates: start: 20240619, end: 20240619
  45. montmorillonite powder [Concomitant]
     Dosage: 1 OTHER BAG
     Route: 048
     Dates: start: 20240619, end: 20240620
  46. Valaciclovir tablets [Concomitant]
     Dates: start: 20240530

REACTIONS (5)
  - Anaemia [Recovered/Resolved with Sequelae]
  - Hypokalaemia [Recovered/Resolved]
  - White blood cell count decreased [Not Recovered/Not Resolved]
  - Neutrophil count decreased [Recovered/Resolved]
  - Diarrhoea [Recovered/Resolved]

NARRATIVE: CASE EVENT DATE: 20240428
